FAERS Safety Report 6685435 (Version 1)
Quarter: 2020Q3

REPORT INFORMATION
  Report Type: Report from Study
  Country: ES (occurrence: ES)
  Receive Date: 20080627
  Receipt Date: 20080627
  Transmission Date: 20201104
  Serious: Yes (Other)
  Sender: FDA-Public Use
  Company Number: ES-JNJFOC-20080604524

PATIENT
  Age: 18 Year
  Sex: Female

DRUGS (6)
  1. ETRAVIRINE [Suspect]
     Active Substance: ETRAVIRINE
     Indication: HIV INFECTION
     Route: 048
  2. NORVIR [Concomitant]
     Active Substance: RITONAVIR
     Indication: HIV INFECTION
  3. RALTEGRAVIR [Concomitant]
     Indication: HIV INFECTION
  4. BACTRIM [Concomitant]
     Active Substance: SULFAMETHOXAZOLE\TRIMETHOPRIM
     Indication: HIV INFECTION
  5. ETRAVIRINE [Suspect]
     Active Substance: ETRAVIRINE
     Route: 048
  6. DARUNAVIR [Concomitant]
     Indication: HIV INFECTION

REACTIONS (2)
  - Odynophagia [Recovered/Resolved]
  - Rash [Recovered/Resolved]

NARRATIVE: CASE EVENT DATE: 20080330
